FAERS Safety Report 9633572 (Version 3)
Quarter: 2013Q4

REPORT INFORMATION
  Report Type: Report from Study
  Country: US (occurrence: US)
  Receive Date: 20131021
  Receipt Date: 20131105
  Transmission Date: 20140711
  Serious: Yes (Hospitalization)
  Sender: FDA-Public Use
  Company Number: PHEH2013US021755

PATIENT
  Age: 72 Year
  Sex: Female
  Weight: 82.54 kg

DRUGS (10)
  1. GILENYA [Suspect]
     Indication: RELAPSING-REMITTING MULTIPLE SCLEROSIS
     Dosage: 0.5 MG, QD
     Route: 048
     Dates: start: 20130820, end: 20130925
  2. LASIX [Concomitant]
     Dosage: 20 MG, UNK
  3. PROVIGIL//MODAFINIL [Concomitant]
     Dosage: 100 MG, QD
  4. BACLOFEN [Concomitant]
     Dosage: 5 MG, BID
  5. ARMOUR THYROID [Concomitant]
  6. SULAR [Concomitant]
     Dosage: 17 MG, QD
  7. VITAMIN B 12 [Concomitant]
     Dosage: 50000 U, QW
  8. AXERT [Concomitant]
  9. XANAX [Concomitant]
     Dosage: 0.25 MG, PRN
  10. MULTI-VIT [Concomitant]

REACTIONS (14)
  - Pancreatitis [Recovered/Resolved]
  - Pancreatic enzymes increased [Recovered/Resolved]
  - Amylase abnormal [Recovered/Resolved]
  - Lipase increased [Recovered/Resolved]
  - Abdominal tenderness [Unknown]
  - Abdominal pain upper [Unknown]
  - Gait disturbance [Unknown]
  - Nausea [Unknown]
  - Influenza like illness [Unknown]
  - Hepatic enzyme abnormal [Unknown]
  - Aspartate aminotransferase increased [Unknown]
  - Alanine aminotransferase increased [Unknown]
  - Blood pressure increased [Unknown]
  - Blood alkaline phosphatase increased [Unknown]
